FAERS Safety Report 16969317 (Version 1)
Quarter: 2019Q4

REPORT INFORMATION
  Report Type: Spontaneous
  Country: US (occurrence: US)
  Receive Date: 20190910
  Receipt Date: 20190910
  Transmission Date: 20200122
  Serious: Yes (Hospitalization)
  Sender: FDA-Public Use
  Company Number: None

PATIENT
  Age: 75 Year
  Sex: Male
  Weight: 69.85 kg

DRUGS (1)
  1. WARFARIN [Suspect]
     Active Substance: WARFARIN
     Indication: ATRIAL FIBRILLATION
     Route: 048
     Dates: start: 20100525, end: 20190607

REACTIONS (7)
  - Dizziness [None]
  - Large intestine perforation [None]
  - Faeces hard [None]
  - Colon cancer [None]
  - Rectal haemorrhage [None]
  - Fatigue [None]
  - Pallor [None]

NARRATIVE: CASE EVENT DATE: 20190528
